FAERS Safety Report 4416114-6 (Version None)
Quarter: 2004Q3

REPORT INFORMATION
  Report Type: 
  Country: None (occurrence: None)
  Receive Date: 20040802
  Receipt Date: 20040723
  Transmission Date: 20050211
  Serious: Yes (Hospitalization)
  Sender: FDA-Public Use
  Company Number: MK200407-0200-1

PATIENT
  Age: 32 Year
  Sex: Female

DRUGS (1)
  1. TOFRANIL TAB [Suspect]
     Dosage: 3G, ONE TIME

REACTIONS (11)
  - BLOOD PRESSURE DECREASED [None]
  - BRADYCARDIA [None]
  - DEPRESSION [None]
  - ELECTROCARDIOGRAM QT CORRECTED INTERVAL SHORTENED [None]
  - GLOSSOPTOSIS [None]
  - OVERDOSE [None]
  - PULSE ABSENT [None]
  - SHOCK [None]
  - SOMNOLENCE [None]
  - TONGUE DISORDER [None]
  - VENTRICULAR EXTRASYSTOLES [None]
